FAERS Safety Report 7995133-7 (Version None)
Quarter: 2011Q4

REPORT INFORMATION
  Report Type: 
  Country: None (occurrence: None)
  Receive Date: 20111220
  Receipt Date: 20111216
  Transmission Date: 20120403
  Serious: Yes (Other)
  Sender: FDA-Public Use
  Company Number: US-GLAXOSMITHKLINE-A0958505A

PATIENT
  Age: 71 Year
  Sex: Male

DRUGS (12)
  1. ALLOPURINOL [Suspect]
     Indication: HYPERURICAEMIA
     Dosage: 100MG PER DAY
     Dates: start: 20030101, end: 20110811
  2. OXYCODONE HCL [Concomitant]
     Indication: PRODUCT USED FOR UNKNOWN INDICATION
  3. INVESTIGATIONAL DRUG [Suspect]
     Indication: MULTIPLE MYELOMA
     Dosage: 2MG PER DAY
     Route: 048
     Dates: start: 20110726
  4. AMIODARONE HCL [Suspect]
     Indication: ATRIAL FIBRILLATION
     Dosage: 200MG PER DAY
     Dates: start: 20110101, end: 20110811
  5. PRILOSEC [Concomitant]
     Indication: PROPHYLAXIS
     Dosage: 10MG PER DAY
     Dates: start: 20090101
  6. FERGON [Concomitant]
     Indication: MINERAL SUPPLEMENTATION
     Dosage: 1TAB PER DAY
     Route: 048
     Dates: start: 20110726
  7. VALTREX [Suspect]
     Indication: ANTIVIRAL PROPHYLAXIS
     Dosage: 500MG PER DAY
     Route: 065
     Dates: start: 20090101, end: 20110811
  8. ZOCOR [Suspect]
     Indication: HYPERLIPIDAEMIA
     Dosage: 40MG PER DAY
     Dates: start: 20110101
  9. VYTORIN [Suspect]
     Indication: HYPERLIPIDAEMIA
     Dates: start: 20110101, end: 20110811
  10. VITAMIN B-12 [Concomitant]
     Indication: PRODUCT USED FOR UNKNOWN INDICATION
     Dosage: 1000UG PER DAY
     Dates: start: 20110101
  11. SYNTHROID [Concomitant]
     Indication: HYPOTHYROIDISM
     Dosage: 172UG PER DAY
     Dates: start: 20040101
  12. AMBIEN [Concomitant]
     Indication: PRODUCT USED FOR UNKNOWN INDICATION

REACTIONS (2)
  - ALANINE AMINOTRANSFERASE INCREASED [None]
  - ASPARTATE AMINOTRANSFERASE INCREASED [None]
